FAERS Safety Report 23552596 (Version 1)
Quarter: 2024Q1

REPORT INFORMATION
  Report Type: Spontaneous
  Country: US (occurrence: None)
  Receive Date: 20240221
  Receipt Date: 20240221
  Transmission Date: 20240410
  Serious: Yes (Hospitalization)
  Sender: FDA-Public Use
  Company Number: None

PATIENT
  Age: 82 Year
  Sex: Male

DRUGS (2)
  1. ADEMPAS [Suspect]
     Active Substance: RIOCIGUAT
     Indication: Pulmonary hypertension
     Dosage: FREQUENCY : 3 TIMES A DAY;?
     Route: 048
     Dates: start: 20221004
  2. OPSUMIT [Suspect]
     Active Substance: MACITENTAN

REACTIONS (3)
  - Acute respiratory failure [None]
  - Cardiac failure congestive [None]
  - Treatment noncompliance [None]

NARRATIVE: CASE EVENT DATE: 20240221
